FAERS Safety Report 18331245 (Version 1)
Quarter: 2020Q3

REPORT INFORMATION
  Report Type: Spontaneous
  Country: US (occurrence: US)
  Receive Date: 20200930
  Receipt Date: 20200930
  Transmission Date: 20201103
  Serious: Yes (Life-Threatening, Hospitalization)
  Sender: FDA-Public Use
  Company Number: US-MYLANLABS-2020M1083630

PATIENT
  Age: 47 Year
  Sex: Male
  Weight: 90.2 kg

DRUGS (10)
  1. EPINEPHRINE. [Suspect]
     Active Substance: EPINEPHRINE
     Indication: SHOCK
     Dosage: 0.03 MICROG/KG/MIN
     Route: 065
  2. ASCORBIC ACID. [Suspect]
     Active Substance: ASCORBIC ACID
     Indication: SHOCK
     Dosage: 1.5 GRAM, Q6H
     Route: 042
  3. NOREPINEPHRINE. [Suspect]
     Active Substance: NOREPINEPHRINE
     Dosage: 0.05 MICROG/KG/MIN
  4. MILRINONE [Suspect]
     Active Substance: MILRINONE
     Indication: SHOCK
     Dosage: 0.25 MICROG/KG/MIN
     Route: 065
  5. NITRIC OXIDE. [Suspect]
     Active Substance: NITRIC OXIDE
     Indication: SHOCK
     Dosage: DOSE: 20 PPM
  6. VASOPRESSIN. [Suspect]
     Active Substance: VASOPRESSIN
     Indication: SHOCK
     Dosage: DOSE: 0.04 U/MIN
     Route: 065
  7. NOREPINEPHRINE. [Suspect]
     Active Substance: NOREPINEPHRINE
     Indication: SHOCK
     Dosage: 0.04 MICROG/KG/MIN
  8. NOREPINEPHRINE. [Suspect]
     Active Substance: NOREPINEPHRINE
     Dosage: 0.18 MICROG/KG/MIN
  9. ISOPROTERENOL                      /00006301/ [Suspect]
     Active Substance: ISOPROTERENOL
     Indication: SHOCK
     Dosage: 20 NG/KG/MIN
     Route: 065
  10. MILRINONE [Suspect]
     Active Substance: MILRINONE
     Dosage: 0.125 MICROG/KG/MIN
     Route: 065

REACTIONS (1)
  - Drug ineffective [Unknown]
